FAERS Safety Report 8457231-3 (Version None)
Quarter: 2012Q2

REPORT INFORMATION
  Report Type: 
  Country: None (occurrence: None)
  Receive Date: 20120621
  Receipt Date: 20120618
  Transmission Date: 20120825
  Serious: Yes (Other)
  Sender: FDA-Public Use
  Company Number: JP-PFIZER INC-2012047193

PATIENT
  Age: 78 Year
  Sex: Female
  Weight: 50 kg

DRUGS (7)
  1. BONOTEO [Suspect]
     Indication: OSTEOPOROSIS
     Dosage: 50 MG, MONTHLY
     Route: 048
     Dates: start: 20111012, end: 20111215
  2. MAGNESIUM OXIDE [Concomitant]
     Indication: CONSTIPATION
     Dosage: UNK
     Dates: start: 20041222
  3. ACTONEL [Concomitant]
     Indication: OSTEOPOROSIS
     Dosage: UNK
     Dates: start: 20071025, end: 20100616
  4. NORVASC [Concomitant]
     Indication: HYPERTENSION
     Dosage: UNK
     Route: 048
     Dates: start: 20101216
  5. RISEDRONATE SODIUM [Concomitant]
     Indication: OSTEOPOROSIS
     Dosage: UNK
     Dates: start: 20100715, end: 20111001
  6. LIPITOR [Suspect]
     Indication: HYPERCHOLESTEROLAEMIA
     Dosage: 5 MG, 1X/DAY
     Route: 048
     Dates: start: 20040929
  7. LEVOTHYROXINE SODIUM [Concomitant]
     Indication: HYPOTHYROIDISM
     Dosage: UNK
     Route: 048
     Dates: start: 20110120

REACTIONS (1)
  - HAEMORRHAGE SUBCUTANEOUS [None]
